FAERS Safety Report 9995005 (Version 1)
Quarter: 2014Q1

REPORT INFORMATION
  Report Type: Spontaneous
  Country: US (occurrence: None)
  Receive Date: 20140307
  Receipt Date: 20140307
  Transmission Date: 20141002
  Serious: Yes (Other)
  Sender: FDA-Public Use
  Company Number: None

PATIENT
  Age: 62 Year
  Sex: Female
  Weight: 81.65 kg

DRUGS (9)
  1. SIMVASTATIN [Suspect]
     Indication: BLOOD CHOLESTEROL
     Dosage: BY MOUTH
  2. INHALER [Concomitant]
  3. ALKASELER COLD MEDICINE [Concomitant]
  4. ZOLOFT [Concomitant]
  5. SIMVASTATIN [Concomitant]
  6. ASPIRIN [Concomitant]
  7. VITAMINS [Concomitant]
  8. CENTURY VITAMINS [Concomitant]
  9. BABY ASPIRIN [Concomitant]

REACTIONS (1)
  - Muscle spasms [None]
